FAERS Safety Report 9255744 (Version 1)
Quarter: 2013Q2

REPORT INFORMATION
  Report Type: Spontaneous
  Country: GB (occurrence: GB)
  Receive Date: 20130425
  Receipt Date: 20130425
  Transmission Date: 20140414
  Serious: Yes (Other)
  Sender: FDA-Public Use
  Company Number: PHHY2013GB038398

PATIENT
  Age: 70 Year
  Sex: Female
  Weight: 55 kg

DRUGS (5)
  1. METHOTREXATE [Suspect]
     Indication: RHEUMATOID ARTHRITIS
     Dosage: 15 MG, QW
     Route: 048
     Dates: start: 2007
  2. ROACTEMRA [Interacting]
     Indication: RHEUMATOID ARTHRITIS
     Dosage: 400 MG
     Route: 042
     Dates: start: 20121006
  3. FOLIC ACID [Concomitant]
     Indication: RHEUMATOID ARTHRITIS
     Dosage: 10 MG, QW
     Route: 048
     Dates: start: 2007
  4. ALENDRONIC ACID [Concomitant]
     Dosage: 70 MG, QW
     Route: 048
     Dates: start: 2011
  5. CALCICHEW D3 [Concomitant]
     Dosage: 2 DF, BID
     Route: 048

REACTIONS (2)
  - Neutropenia [Recovered/Resolved]
  - Drug interaction [Unknown]
